FAERS Safety Report 12743132 (Version 1)
Quarter: 2016Q3

REPORT INFORMATION
  Report Type: Spontaneous
  Country: None (occurrence: US)
  Receive Date: 20160914
  Receipt Date: 20160914
  Transmission Date: 20161109
  Serious: No
  Sender: FDA-Public Use
  Company Number: US-SIGMA-TAU US-2016STPI000485

PATIENT

DRUGS (4)
  1. MATULANE [Suspect]
     Active Substance: PROCARBAZINE HYDROCHLORIDE
     Indication: GLIOBLASTOMA
     Dosage: 100 MG, OTHER
     Route: 048
     Dates: start: 20160223, end: 201606
  2. KEPPRA [Concomitant]
     Active Substance: LEVETIRACETAM
     Indication: PRODUCT USED FOR UNKNOWN INDICATION
  3. VINCRISTINE [Concomitant]
     Active Substance: VINCRISTINE
     Indication: GLIOBLASTOMA
  4. LOMUSTINE. [Concomitant]
     Active Substance: LOMUSTINE
     Indication: GLIOBLASTOMA

REACTIONS (4)
  - Fatigue [Unknown]
  - Nausea [Unknown]
  - Neutropenia [Unknown]
  - Leukopenia [Unknown]

NARRATIVE: CASE EVENT DATE: 201602
